FAERS Safety Report 10451259 (Version 2)
Quarter: 2014Q3

REPORT INFORMATION
  Report Type: Spontaneous
  Country: US (occurrence: US)
  Receive Date: 20140912
  Receipt Date: 20140912
  Transmission Date: 20150326
  Serious: Yes (Hospitalization)
  Sender: FDA-Public Use
  Company Number: US-009507513-1101USA00098

PATIENT
  Age: 77 Year
  Sex: Female
  Weight: 77.98 kg

DRUGS (2)
  1. HEXADROL [Suspect]
     Active Substance: DEXAMETHASONE
     Indication: PLASMA CELL MYELOMA
     Dosage: 40 MG, Q3W
     Route: 048
     Dates: start: 20100406, end: 20100615
  2. VELCADE [Suspect]
     Active Substance: BORTEZOMIB
     Indication: PLASMA CELL MYELOMA
     Dosage: 2.2 MG/M2, CYCLICAL (2X WEEKLY, DAYS 1 AND 4 Q 7D, 1 WK OFF Q 14D)
     Route: 042
     Dates: start: 20100406, end: 20100615

REACTIONS (4)
  - Immunosuppression [Recovered/Resolved]
  - Conjunctivitis [Recovered/Resolved]
  - Pneumonia [Recovered/Resolved]
  - Confusional state [Recovered/Resolved]

NARRATIVE: CASE EVENT DATE: 20100604
